FAERS Safety Report 9514137 (Version 1)
Quarter: 2013Q3

REPORT INFORMATION
  Report Type: Spontaneous
  Country: DE (occurrence: DE)
  Receive Date: 20130910
  Receipt Date: 20130910
  Transmission Date: 20140515
  Serious: Yes (Other)
  Sender: FDA-Public Use
  Company Number: DE-WATSON-2013-16367

PATIENT
  Sex: Female

DRUGS (5)
  1. FENTANYL (UNKNOWN) [Suspect]
     Indication: BACK PAIN
     Dosage: INITIALLY 25 MICROGRAM THEN 100 MICROGRAM PATCHES
     Route: 065
  2. SAROTEN [Concomitant]
     Indication: PRODUCT USED FOR UNKNOWN INDICATION
     Dosage: 75 MG, DAILY
     Route: 065
  3. PANTOPRAZOLE [Concomitant]
     Indication: PRODUCT USED FOR UNKNOWN INDICATION
     Dosage: UNK, UNKNOWN
     Route: 065
  4. KATADOLON                          /00890102/ [Concomitant]
     Indication: PRODUCT USED FOR UNKNOWN INDICATION
     Dosage: 1 DF, DAILY
     Route: 065
  5. ASS [Concomitant]
     Indication: PRODUCT USED FOR UNKNOWN INDICATION
     Dosage: 100 MG, DAILY
     Route: 065

REACTIONS (6)
  - Depression [Unknown]
  - Dizziness [Unknown]
  - Drug dependence [Unknown]
  - Restlessness [Unknown]
  - Sedation [Unknown]
  - Withdrawal syndrome [Unknown]
